FAERS Safety Report 6096100-3 (Version None)
Quarter: 2009Q1

REPORT INFORMATION
  Report Type: 
  Country: None (occurrence: None)
  Receive Date: 20090227
  Receipt Date: 20080929
  Transmission Date: 20090719
  Serious: No
  Sender: FDA-Public Use
  Company Number: A0745682A

PATIENT
  Age: 60 Year
  Sex: Female

DRUGS (13)
  1. LAMICTAL [Suspect]
     Indication: FIBROMYALGIA
     Dosage: 25MG PER DAY
     Route: 048
     Dates: start: 20080529, end: 20080604
  2. VALTREX [Suspect]
     Dosage: 1000MG TWICE PER DAY
     Route: 048
  3. CYMBALTA [Concomitant]
  4. LYRICA [Concomitant]
  5. VESICARE [Concomitant]
  6. DOLAMIN [Concomitant]
  7. UNKNOWN MEDICATION [Concomitant]
  8. METHADONE HCL [Concomitant]
     Dosage: .25TAB PER DAY
     Route: 048
  9. SYNTHROID [Concomitant]
     Dosage: 75MCG PER DAY
     Route: 048
  10. PRILOSEC [Concomitant]
     Dosage: 20MG PER DAY
     Route: 048
  11. ASPIRIN [Concomitant]
     Dosage: 80MG PER DAY
     Route: 048
  12. CALCIUM + D [Concomitant]
     Dosage: 600MG PER DAY
     Route: 048
  13. FISH OIL [Concomitant]

REACTIONS (8)
  - CANDIDIASIS [None]
  - DRUG INEFFECTIVE [None]
  - DRY MOUTH [None]
  - HERPES SIMPLEX [None]
  - LIP SWELLING [None]
  - RASH ERYTHEMATOUS [None]
  - RASH PRURITIC [None]
  - STOMATITIS [None]
